FAERS Safety Report 17109172 (Version 1)
Quarter: 2019Q4

REPORT INFORMATION
  Report Type: Spontaneous
  Country: FR (occurrence: FR)
  Receive Date: 20191204
  Receipt Date: 20191204
  Transmission Date: 20200122
  Serious: Yes (Hospitalization)
  Sender: FDA-Public Use
  Company Number: FR-TEVA-2019-FR-1145974

PATIENT
  Age: 41 Year
  Sex: Male

DRUGS (9)
  1. HEROIN [Suspect]
     Active Substance: DIAMORPHINE
     Indication: DRUG DEPENDENCE
     Dosage: 1 GRAM PER DAY
     Route: 045
     Dates: start: 1997, end: 2007
  2. SERESTA [Suspect]
     Active Substance: OXAZEPAM
     Indication: PRODUCT USED FOR UNKNOWN INDICATION
     Dosage: UNINFORMED
     Route: 048
  3. MDMA [Suspect]
     Active Substance: MIDOMAFETAMINE
     Indication: DRUG ABUSE
     Dosage: UNINFORMED
     Route: 065
     Dates: start: 1997, end: 2016
  4. DIAZEPAM. [Suspect]
     Active Substance: DIAZEPAM
     Indication: PRODUCT USED FOR UNKNOWN INDICATION
     Dosage: UNINFORMED
     Route: 048
  5. ALCOOL [Suspect]
     Active Substance: ALCOHOL
     Indication: ALCOHOL USE
     Dosage: 44 US ALCOHOL/DAY
     Route: 048
     Dates: start: 1987
  6. SUBUTEX [Suspect]
     Active Substance: BUPRENORPHINE HYDROCHLORIDE
     Indication: PRODUCT USED FOR UNKNOWN INDICATION
     Dosage: UNINFORMED
     Route: 065
     Dates: start: 2007, end: 2014
  7. CANNABIS [Suspect]
     Active Substance: CANNABIS SATIVA SUBSP. INDICA TOP
     Indication: DRUG ABUSE
     Dosage: 3 JOINTS/DAY
     Route: 055
     Dates: start: 1992
  8. TABAC (POUDRE DE) [Suspect]
     Active Substance: TOBACCO LEAF
     Indication: TOBACCO USER
     Dosage: 15 ROLLED CIGARETTES/DAY
     Route: 055
     Dates: start: 1987
  9. COCAINE [Suspect]
     Active Substance: COCAINE
     Indication: DRUG ABUSE
     Dosage: UNINFORMED
     Route: 045
     Dates: start: 2007

REACTIONS (7)
  - Drug dependence [Recovering/Resolving]
  - Toxicity to various agents [Recovered/Resolved]
  - Drug dependence [Recovered/Resolved]
  - Drug dependence [Recovering/Resolving]
  - Drug dependence [Recovering/Resolving]
  - Intentional product misuse [Recovering/Resolving]
  - Alcohol abuse [Recovering/Resolving]

NARRATIVE: CASE EVENT DATE: 1987
